FAERS Safety Report 4712752-1 (Version None)
Quarter: 2005Q3

REPORT INFORMATION
  Report Type: 
  Country: None (occurrence: None)
  Receive Date: 20050701
  Receipt Date: 20050310
  Transmission Date: 20060218
  Serious: Yes (Other)
  Sender: FDA-Public Use
  Company Number: 2005030544

PATIENT
  Age: 36 Year
  Sex: Female

DRUGS (2)
  1. ZOLOFT [Suspect]
     Indication: ILL-DEFINED DISORDER
     Dosage: 50 MG (50 MG, 1 IN 1 D), ORAL
     Route: 048
  2. AMBIEN [Concomitant]

REACTIONS (2)
  - AMNESIA [None]
  - HALLUCINATION [None]
